FAERS Safety Report 6843860-7 (Version None)
Quarter: 2010Q3

REPORT INFORMATION
  Report Type: 
  Country: None (occurrence: None)
  Receive Date: 20100715
  Receipt Date: 20100702
  Transmission Date: 20110219
  Serious: Yes (Other)
  Sender: FDA-Public Use
  Company Number: PHHY2010US15939

PATIENT
  Sex: Female
  Weight: 62.6 kg

DRUGS (29)
  1. EXJADE [Suspect]
     Indication: IRON METABOLISM DISORDER
     Dosage: 1000 MG, DAILY
     Route: 048
     Dates: start: 20100304
  2. LOVASTATIN [Concomitant]
  3. OXYBUTYNIN CHLORIDE [Concomitant]
     Dosage: UNK
  4. SINGULAIR [Concomitant]
     Dosage: UNK
  5. MAGNESIUM [Concomitant]
     Dosage: UNK
  6. PROAIR INH [Concomitant]
  7. RANITIDINE [Concomitant]
  8. VERAPAMIL - SLOW RELEASE [Concomitant]
     Dosage: UNK
  9. ALLOPURINOL [Concomitant]
     Dosage: UNK
  10. VALTREX [Concomitant]
     Dosage: UNK
  11. FLONASE [Concomitant]
     Dosage: UNK
  12. PHOSLO [Concomitant]
     Dosage: UNK
  13. PREVACID [Concomitant]
  14. MECLIZINE [Concomitant]
     Dosage: UNK
  15. REGLAN [Concomitant]
     Dosage: UNK
  16. METFORMIN HCL [Concomitant]
     Dosage: UNK
  17. KLOR-CON [Concomitant]
     Dosage: UNK
  18. NEURONTIN [Concomitant]
     Dosage: UNK
  19. NITROSTAT [Concomitant]
     Dosage: UNK
  20. VITAMIN E [Concomitant]
     Dosage: UNK
  21. COQ10 [Concomitant]
     Dosage: UNK
  22. ZOFRAN [Concomitant]
     Dosage: UNK
  23. VITAMIN B [Concomitant]
     Dosage: UNK
  24. VITAMIN D [Concomitant]
     Dosage: UNK
  25. FOLIC ACID [Concomitant]
     Dosage: UNK
  26. NITROFURANTOIN [Concomitant]
     Dosage: UNK
  27. CALCIUM [Concomitant]
     Dosage: UNK
  28. VITAMIN C [Concomitant]
     Dosage: UNK
  29. LYSINE [Concomitant]
     Dosage: UNK

REACTIONS (11)
  - CYSTITIS [None]
  - DIARRHOEA [None]
  - DIZZINESS [None]
  - DRUG INEFFECTIVE [None]
  - DYSENTERY [None]
  - FALL [None]
  - KIDNEY INFECTION [None]
  - NASOPHARYNGITIS [None]
  - NAUSEA [None]
  - SERUM FERRITIN INCREASED [None]
  - THROMBOCYTOPENIA [None]
